FAERS Safety Report 10032545 (Version 1)
Quarter: 2014Q1

REPORT INFORMATION
  Report Type: Spontaneous
  Country: US (occurrence: US)
  Receive Date: 20140324
  Receipt Date: 20140324
  Transmission Date: 20141002
  Serious: No
  Sender: FDA-Public Use
  Company Number: US-SHIONOGI, INC-2013000368

PATIENT
  Age: 55 Year
  Sex: Female
  Weight: 62.13 kg

DRUGS (3)
  1. OSPHENA [Suspect]
     Indication: DYSPAREUNIA
     Dosage: 60 MG, QD
     Route: 065
     Dates: start: 20131024
  2. FOSAMAX [Concomitant]
     Indication: PRODUCT USED FOR UNKNOWN INDICATION
     Dosage: UNK
     Route: 065
  3. ZOCOR [Concomitant]
     Indication: PRODUCT USED FOR UNKNOWN INDICATION
     Dosage: UNK
     Route: 065

REACTIONS (1)
  - Vaginal haemorrhage [Recovered/Resolved]
